FAERS Safety Report 4329880-5 (Version None)
Quarter: 2004Q1

REPORT INFORMATION
  Report Type: 
  Country: None (occurrence: None)
  Receive Date: 20040329
  Receipt Date: 20040315
  Transmission Date: 20041129
  Serious: Yes (Death)
  Sender: FDA-Public Use
  Company Number: FR-JNJFOC-20040303693

PATIENT
  Age: 72 Year
  Sex: Female

DRUGS (5)
  1. RISPERDAL [Suspect]
     Indication: PSYCHOTIC DISORDER
     Dosage: 4 MG, 3 IN 1 DAY, ORAL
     Route: 048
     Dates: start: 20040309, end: 20040311
  2. RISPERDAL CONSTA [Suspect]
     Indication: PSYCHOTIC DISORDER
     Dates: start: 20040310
  3. PAROXETINE HCL [Concomitant]
  4. PRAZEPAM [Concomitant]
  5. DUPHALAC [Concomitant]

REACTIONS (4)
  - ATRIOVENTRICULAR BLOCK SECOND DEGREE [None]
  - BRADYCARDIA [None]
  - DRUG INTERACTION [None]
  - HYPOTENSION [None]
